FAERS Safety Report 11026318 (Version 1)
Quarter: 2015Q2

REPORT INFORMATION
  Report Type: Spontaneous
  Country: JP (occurrence: JP)
  Receive Date: 20150414
  Receipt Date: 20150414
  Transmission Date: 20150821
  Serious: Yes (Hospitalization)
  Sender: FDA-Public Use
  Company Number: ALJP2015JP000535

PATIENT
  Age: 72 Year
  Sex: Female

DRUGS (3)
  1. VISCOAT 0.5 OPHTHALMIC VISCOELASTIC SUBSTANCE [Suspect]
     Active Substance: CHONDROITIN SULFATE A\HYALURONATE SODIUM
     Indication: LENS EXTRACTION
     Dosage: UNK
     Route: 031
     Dates: start: 20150331, end: 20150331
  2. OPEGAN HI [Concomitant]
     Indication: LENS EXTRACTION
     Dosage: UNK
     Route: 047
     Dates: start: 20150331, end: 20150331
  3. BSS PLUS [Suspect]
     Active Substance: CALCIUM CHLORIDE\DEXTROSE\MAGNESIUM CHLORIDE\OXIGLUTATIONE\POTASSIUM CHLORIDE\SODIUM BICARBONATE\SODIUM CHLORIDE\SODIUM PHOSPHATE\SODIUM PHOSPHATE, DIBASIC
     Indication: LENS EXTRACTION
     Dosage: UNK UNK, QD
     Route: 031
     Dates: start: 20150331, end: 20150331

REACTIONS (1)
  - Non-infectious endophthalmitis [Not Recovered/Not Resolved]

NARRATIVE: CASE EVENT DATE: 20150407
